FAERS Safety Report 11945812 (Version 1)
Quarter: 2016Q1

REPORT INFORMATION
  Report Type: Spontaneous
  Country: US (occurrence: US)
  Receive Date: 20160125
  Receipt Date: 20160125
  Transmission Date: 20160526
  Serious: No
  Sender: FDA-Public Use
  Company Number: US-JNJFOC-20151206996

PATIENT
  Age: 68 Year
  Sex: Female

DRUGS (21)
  1. ALLERGY MEDICATION [Concomitant]
     Active Substance: DIPHENHYDRAMINE HYDROCHLORIDE
     Indication: MULTIPLE ALLERGIES
     Route: 065
  2. ALL OTHER THERAPEUTIC PRODUCTS [Concomitant]
     Active Substance: UNSPECIFIED INGREDIENT
     Indication: SUPPLEMENTATION THERAPY
     Route: 065
  3. ANTIOXIDANT FORMULA [Concomitant]
     Indication: SUPPLEMENTATION THERAPY
     Route: 065
  4. GELATIN [Concomitant]
     Active Substance: GELATIN
     Indication: SUPPLEMENTATION THERAPY
     Route: 065
  5. WOMENS ROGAINE UNSCENTED [Suspect]
     Active Substance: MINOXIDIL
     Indication: ALOPECIA
     Dosage: MORE THAN HALF A CAPFUL
     Route: 061
  6. VITAMIN C [Concomitant]
     Active Substance: ASCORBIC ACID
     Indication: SUPPLEMENTATION THERAPY
     Route: 065
  7. ALL OTHER THERAPEUTIC PRODUCTS [Concomitant]
     Active Substance: UNSPECIFIED INGREDIENT
     Indication: SUPPLEMENTATION THERAPY
     Route: 065
  8. BIOTIN [Concomitant]
     Active Substance: BIOTIN
     Indication: SUPPLEMENTATION THERAPY
     Route: 065
  9. CALCIUM W/MAGNESIUM [Concomitant]
     Active Substance: CALCIUM\MAGNESIUM
     Indication: SUPPLEMENTATION THERAPY
     Route: 065
  10. CHOLINE W/INOSITOL [Concomitant]
     Indication: SUPPLEMENTATION THERAPY
     Route: 065
  11. N ACETYL CYSTEINE [Concomitant]
     Active Substance: ACETYLCYSTEINE
     Indication: SUPPLEMENTATION THERAPY
     Route: 065
  12. DOCOSAHEXAENOIC ACID [Concomitant]
     Active Substance: DOCONEXENT
     Indication: SUPPLEMENTATION THERAPY
     Route: 065
  13. ALL OTHER THERAPEUTIC PRODUCTS [Concomitant]
     Active Substance: UNSPECIFIED INGREDIENT
     Indication: SUPPLEMENTATION THERAPY
     Route: 065
  14. ALL OTHER THERAPEUTIC PRODUCTS [Concomitant]
     Active Substance: UNSPECIFIED INGREDIENT
     Indication: SUPPLEMENTATION THERAPY
     Route: 065
  15. TRIPLE MAGNESIUM COMPLEX [Concomitant]
     Indication: SUPPLEMENTATION THERAPY
     Route: 065
  16. MENAQUINONE [Concomitant]
     Indication: SUPPLEMENTATION THERAPY
     Route: 065
  17. ESTROGEN W/TESTOSTERONE [Concomitant]
     Indication: MENOPAUSE
     Dosage: HALF STRENGTH
     Route: 065
  18. MULTIVITAMINS [Concomitant]
     Active Substance: VITAMINS
     Indication: SUPPLEMENTATION THERAPY
     Route: 065
  19. WOMENS ROGAINE UNSCENTED [Suspect]
     Active Substance: MINOXIDIL
     Route: 061
  20. CALCIUM W/ZINC [Concomitant]
     Indication: SUPPLEMENTATION THERAPY
     Route: 065
  21. SILICON [Concomitant]
     Active Substance: SILICON
     Indication: SUPPLEMENTATION THERAPY
     Route: 065

REACTIONS (3)
  - Drug administered at inappropriate site [Recovering/Resolving]
  - Incorrect dose administered [Recovering/Resolving]
  - Alopecia [Recovering/Resolving]
